FAERS Safety Report 15169054 (Version 2)
Quarter: 2018Q4

REPORT INFORMATION
  Report Type: Report from Study
  Country: None (occurrence: BR)
  Receive Date: 20180720
  Receipt Date: 20181022
  Transmission Date: 20190204
  Serious: Yes (Hospitalization, Other)
  Sender: FDA-Public Use
  Company Number: BR-ABBVIE-18K-020-2422540-00

PATIENT
  Sex: Female
  Weight: 89 kg

DRUGS (2)
  1. VIMOVO [Concomitant]
     Active Substance: ESOMEPRAZOLE MAGNESIUM\NAPROXEN
     Indication: ANKYLOSING SPONDYLITIS
  2. HUMIRA [Suspect]
     Active Substance: ADALIMUMAB
     Indication: ANKYLOSING SPONDYLITIS
     Route: 058
     Dates: start: 20171206, end: 20180502

REACTIONS (17)
  - Monocyte count increased [Recovered/Resolved]
  - Vitamin D decreased [Recovering/Resolving]
  - Vitamin B12 decreased [Recovering/Resolving]
  - Adenosine deaminase abnormal [Unknown]
  - Anxiety [Not Recovered/Not Resolved]
  - Platelet count increased [Recovered/Resolved]
  - Pulmonary tuberculosis [Recovering/Resolving]
  - Ankylosing spondylitis [Not Recovered/Not Resolved]
  - Pleural effusion [Recovered/Resolved]
  - Back pain [Recovering/Resolving]
  - Pneumonia [Unknown]
  - Red blood cell sedimentation rate increased [Unknown]
  - Pleural fibrosis [Unknown]
  - Arthritis [Not Recovered/Not Resolved]
  - Fatigue [Recovering/Resolving]
  - Dyspnoea [Recovering/Resolving]
  - Infection [Unknown]
